FAERS Safety Report 9151252 (Version 2)
Quarter: 2013Q1

REPORT INFORMATION
  Report Type: Spontaneous
  Country: JP (occurrence: None)
  Receive Date: 20130201
  Receipt Date: 20130227
  Transmission Date: 20140127
  Serious: Yes (Other)
  Sender: FDA-Public Use
  Company Number: JP-20130003

PATIENT
  Age: 52 Year
  Sex: Male

DRUGS (2)
  1. LIPIODOL ULTRA FLUIDE (ETHIODIZED OIL), UNKNOWN [Suspect]
     Indication: THERAPEUTIC EMBOLISATION
     Route: 014
     Dates: start: 20101210, end: 20101210
  2. GELATIN [Concomitant]

REACTIONS (6)
  - Liver abscess [None]
  - Off label use [None]
  - Tumour necrosis [None]
  - Immunosuppression [None]
  - Bile duct obstruction [None]
  - Bacterial infection [None]
